FAERS Safety Report 20551989 (Version 6)
Quarter: 2022Q3

REPORT INFORMATION
  Report Type: Spontaneous
  Country: US (occurrence: US)
  Receive Date: 20220304
  Receipt Date: 20220824
  Transmission Date: 20221027
  Serious: No
  Sender: FDA-Public Use
  Company Number: US-BIOGEN-2021BI01070044

PATIENT
  Age: 55 Year
  Sex: Male

DRUGS (1)
  1. TYSABRI [Suspect]
     Active Substance: NATALIZUMAB
     Indication: Multiple sclerosis
     Route: 050
     Dates: start: 20210519, end: 20220505

REACTIONS (7)
  - Product dose omission issue [Unknown]
  - Musculoskeletal stiffness [Not Recovered/Not Resolved]
  - Pain [Not Recovered/Not Resolved]
  - Cognitive disorder [Unknown]
  - Lacrimation increased [Unknown]
  - Illness [Unknown]
  - Fatigue [Unknown]

NARRATIVE: CASE EVENT DATE: 20211204
